FAERS Safety Report 19224236 (Version 1)
Quarter: 2021Q2

REPORT INFORMATION
  Report Type: Spontaneous
  Country: US (occurrence: US)
  Receive Date: 20210505
  Receipt Date: 20210505
  Transmission Date: 20210717
  Serious: No
  Sender: FDA-Public Use
  Company Number: US-ROCHE-2642672

PATIENT
  Sex: Male

DRUGS (1)
  1. ESBRIET [Suspect]
     Active Substance: PIRFENIDONE
     Indication: IDIOPATHIC PULMONARY FIBROSIS
     Dosage: FREQUENCY: ONCE A WEEK, THEN TWICE PER 3 DAYS, THEN THREE TIMES PER 3 DAYS FOR 1 WEEK
     Route: 048

REACTIONS (2)
  - Eye disorder [Unknown]
  - Lethargy [Unknown]
